FAERS Safety Report 14101044 (Version 1)
Quarter: 2017Q4

REPORT INFORMATION
  Report Type: Spontaneous
  Country: US (occurrence: None)
  Receive Date: 20171017
  Receipt Date: 20171017
  Transmission Date: 20180321
  Serious: No
  Sender: FDA-Public Use
  Company Number: None

PATIENT
  Sex: Male

DRUGS (1)
  1. STIVARGA [Suspect]
     Active Substance: REGORAFENIB
     Indication: COLORECTAL CANCER
     Dosage: 40MG Q AM, 80MG Q PM  14 DAYS ON/OFF 7 DAYS  PO
     Route: 048
     Dates: start: 20171012

REACTIONS (9)
  - Dysphonia [None]
  - Sleep disorder [None]
  - Fatigue [None]
  - Back pain [None]
  - Paraesthesia [None]
  - Headache [None]
  - Arthralgia [None]
  - Pain in extremity [None]
  - Cough [None]
